FAERS Safety Report 7177737-7 (Version None)
Quarter: 2010Q4

REPORT INFORMATION
  Report Type: 
  Country: None (occurrence: None)
  Receive Date: 20101220
  Receipt Date: 20101215
  Transmission Date: 20110411
  Serious: Yes (Life-Threatening, Hospitalization)
  Sender: FDA-Public Use
  Company Number: GB-MERCK-1010GBR00059

PATIENT
  Age: 75 Year
  Sex: Female

DRUGS (6)
  1. FOSAMAX [Suspect]
     Indication: OSTEOPOROSIS PROPHYLAXIS
     Route: 048
     Dates: start: 20100714, end: 20100714
  2. ACYCLOVIR [Concomitant]
     Route: 065
  3. CALCIUM CARBONATE [Concomitant]
     Route: 048
     Dates: start: 20100701
  4. OMEPRAZOLE [Concomitant]
     Route: 048
  5. PREDNISOLONE [Concomitant]
     Indication: TEMPORAL ARTERITIS
     Route: 048
  6. SIMVASTATIN [Concomitant]
     Route: 048

REACTIONS (1)
  - IDIOPATHIC THROMBOCYTOPENIC PURPURA [None]
